FAERS Safety Report 9832035 (Version 3)
Quarter: 2018Q4

REPORT INFORMATION
  Report Type: Report from Study
  Country: MY (occurrence: MY)
  Receive Date: 20140121
  Receipt Date: 20181015
  Transmission Date: 20190205
  Serious: Yes (Hospitalization, Other)
  Sender: FDA-Public Use
  Company Number: PHHO2013MY016701

PATIENT
  Age: 59 Year
  Sex: Female
  Weight: 46 kg

DRUGS (3)
  1. EVEROLIMUS. [Suspect]
     Active Substance: EVEROLIMUS
     Indication: BREAST CANCER METASTATIC
     Dosage: 10 MG, QD
     Route: 048
     Dates: start: 20131121
  2. EVEROLIMUS. [Suspect]
     Active Substance: EVEROLIMUS
     Dosage: 5 MG, QD
     Route: 048
     Dates: start: 20131231
  3. EXEMESTANE. [Suspect]
     Active Substance: EXEMESTANE
     Indication: BREAST CANCER METASTATIC
     Dosage: 25 MG, QD
     Route: 048
     Dates: start: 20131121

REACTIONS (4)
  - Tumour necrosis [Recovering/Resolving]
  - Pyrexia [Recovered/Resolved]
  - Thrombocytopenia [Recovered/Resolved]
  - Skin ulcer [Recovering/Resolving]

NARRATIVE: CASE EVENT DATE: 20131205
